FAERS Safety Report 13834512 (Version 2)
Quarter: 2017Q3

REPORT INFORMATION
  Report Type: Spontaneous
  Country: US (occurrence: US)
  Receive Date: 20170804
  Receipt Date: 20170828
  Transmission Date: 20171127
  Serious: Yes (Other)
  Sender: FDA-Public Use
  Company Number: US-PRINSTON PHARMACEUTICAL INC.-2017PRN00284

PATIENT
  Sex: Female

DRUGS (3)
  1. CLONAZEPAM. [Suspect]
     Active Substance: CLONAZEPAM
     Indication: TRIGEMINAL NEURALGIA
     Dosage: UNK
  2. CLONAZEPAM (SANDOZ BRAND) [Suspect]
     Active Substance: CLONAZEPAM
     Indication: TRIGEMINAL NEURALGIA
     Dosage: 1 MG, 1X/DAY
     Route: 048
     Dates: start: 201707
  3. CLONAZEPAM (SANDOZ BRAND) [Suspect]
     Active Substance: CLONAZEPAM

REACTIONS (4)
  - Cough [Not Recovered/Not Resolved]
  - Reaction to colouring [Unknown]
  - Drug ineffective for unapproved indication [Not Recovered/Not Resolved]
  - Toothache [Not Recovered/Not Resolved]

NARRATIVE: CASE EVENT DATE: 201707
